FAERS Safety Report 21032334 (Version 1)
Quarter: 2022Q3

REPORT INFORMATION
  Report Type: Spontaneous
  Country: US (occurrence: US)
  Receive Date: 20220701
  Receipt Date: 20220701
  Transmission Date: 20221027
  Serious: No
  Sender: FDA-Public Use
  Company Number: US-drreddys-SPO/USA/22/0151473

PATIENT
  Age: 15 Year

DRUGS (1)
  1. ACCUTANE [Suspect]
     Active Substance: ISOTRETINOIN
     Indication: Product used for unknown indication
     Dosage: RMA ISSUE DATE: 06 JANUARY 2022,10:27:32 AM, 17 FEBRUARY 2022, 10:12:59 AM, 17 MARCH 2022, 12:10:46

REACTIONS (1)
  - Treatment noncompliance [Unknown]
